FAERS Safety Report 7183534-9 (Version None)
Quarter: 2010Q4

REPORT INFORMATION
  Report Type: 
  Country: None (occurrence: None)
  Receive Date: 20101222
  Receipt Date: 20101216
  Transmission Date: 20110411
  Serious: Yes (Life-Threatening, Hospitalization)
  Sender: FDA-Public Use
  Company Number: PHHY2010US86188

PATIENT
  Age: 63 Week
  Sex: Female

DRUGS (4)
  1. TEKTURNA [Suspect]
     Indication: HYPERTENSION
     Dosage: 150 MG, UNK
     Dates: start: 20100119
  2. TEKTURNA [Suspect]
     Dosage: 300 MG, QD
     Route: 048
     Dates: start: 20100126
  3. AMBIEN [Concomitant]
  4. ZEGERID [Concomitant]

REACTIONS (2)
  - HEPATITIS [None]
  - LIVER DISORDER [None]
